FAERS Safety Report 5061205-2 (Version None)
Quarter: 2006Q3

REPORT INFORMATION
  Report Type: 
  Country: None (occurrence: None)
  Receive Date: 20060721
  Receipt Date: 20060721
  Transmission Date: 20061208
  Serious: Yes (Other)
  Sender: FDA-Public Use
  Company Number: None

PATIENT
  Age: 91 Year
  Sex: Male
  Weight: 62.5964 kg

DRUGS (1)
  1. AMBIEN CR [Suspect]
     Indication: INSOMNIA
     Dosage: 12.5 MG NIGHTLY PO
     Route: 048
     Dates: start: 20060401, end: 20060501

REACTIONS (3)
  - FALL [None]
  - SKIN LACERATION [None]
  - SPINAL COMPRESSION FRACTURE [None]
